FAERS Safety Report 7475099-9 (Version None)
Quarter: 2011Q2

REPORT INFORMATION
  Report Type: 
  Country: None (occurrence: None)
  Receive Date: 20110512
  Receipt Date: 20110422
  Transmission Date: 20111010
  Serious: No
  Sender: FDA-Public Use
  Company Number: US-B.I. PHARMACEUTICALS,INC./RIDGEFIELD-2011-BP-06988BP

PATIENT
  Sex: Male

DRUGS (5)
  1. METOPROLOL SUCCINATE [Concomitant]
  2. PRAVASTATIN [Concomitant]
  3. FLECALIDE [Concomitant]
  4. PRILOSEC [Concomitant]
  5. PRADAXA [Suspect]
     Indication: ATRIAL FIBRILLATION
     Dosage: 300 MG
     Route: 048
     Dates: start: 20110301

REACTIONS (5)
  - FLATULENCE [None]
  - CHEST DISCOMFORT [None]
  - RECTAL HAEMORRHAGE [None]
  - MELAENA [None]
  - ARTHRALGIA [None]
